FAERS Safety Report 17147314 (Version 1)
Quarter: 2019Q4

REPORT INFORMATION
  Report Type: Spontaneous
  Country: NL (occurrence: NL)
  Receive Date: 20191212
  Receipt Date: 20191212
  Transmission Date: 20200122
  Serious: Yes (Other)
  Sender: FDA-Public Use
  Company Number: NL-AUROBINDO-AUR-APL-2019-105108

PATIENT
  Sex: Female
  Weight: 82 kg

DRUGS (1)
  1. VALPROATE SODIUM 600 MG GASTRORESISTANT TABLETS [Suspect]
     Active Substance: VALPROATE SODIUM
     Indication: MOOD ALTERED
     Dosage: 600 MILLIGRAM, ONCE A DAY (1 X PER DAY)
     Route: 048
     Dates: start: 20100311

REACTIONS (1)
  - Polycythaemia vera [Not Recovered/Not Resolved]
